FAERS Safety Report 25193220 (Version 1)
Quarter: 2025Q2

REPORT INFORMATION
  Report Type: Report from Study
  Country: US (occurrence: US)
  Receive Date: 20250414
  Receipt Date: 20250414
  Transmission Date: 20250717
  Serious: Yes (Hospitalization)
  Sender: ALNYLAM PHARMACEUTICALS
  Company Number: US-ALNYLAM PHARMACEUTICALS, INC.-ALN-2025-000526

PATIENT

DRUGS (3)
  1. AMVUTTRA [Suspect]
     Active Substance: VUTRISIRAN
     Indication: Hereditary neuropathic amyloidosis
     Route: 065
     Dates: start: 20241022, end: 20241022
  2. AMVUTTRA [Suspect]
     Active Substance: VUTRISIRAN
     Route: 065
     Dates: start: 20250122, end: 20250122
  3. B12 [Concomitant]
     Indication: Product used for unknown indication
     Route: 065
     Dates: start: 20250123

REACTIONS (8)
  - Condition aggravated [Unknown]
  - Tachycardia [Unknown]
  - Dizziness [Unknown]
  - Headache [Unknown]
  - Injection site pain [Unknown]
  - White blood cell count decreased [Unknown]
  - Chest pain [Unknown]
  - Nausea [Unknown]

NARRATIVE: CASE EVENT DATE: 20250101
